FAERS Safety Report 23653848 (Version 2)
Quarter: 2024Q2

REPORT INFORMATION
  Report Type: Spontaneous
  Country: US (occurrence: US)
  Receive Date: 20240320
  Receipt Date: 20240401
  Transmission Date: 20240715
  Serious: No
  Sender: FDA-Public Use
  Company Number: US-JNJFOC-20240346933

PATIENT
  Age: 73 Year
  Sex: Female

DRUGS (1)
  1. TREMFYA [Suspect]
     Active Substance: GUSELKUMAB
     Indication: Psoriatic arthropathy
     Route: 065
     Dates: start: 202311

REACTIONS (3)
  - Device malfunction [Unknown]
  - Product dose omission issue [Unknown]
  - Product leakage [Unknown]

NARRATIVE: CASE EVENT DATE: 20240313
